FAERS Safety Report 7712488-9 (Version None)
Quarter: 2011Q3

REPORT INFORMATION
  Report Type: 
  Country: None (occurrence: None)
  Receive Date: 20110826
  Receipt Date: 20110826
  Transmission Date: 20111222
  Serious: Yes (Life-Threatening, Hospitalization, Other)
  Sender: FDA-Public Use
  Company Number: None

PATIENT
  Sex: Male
  Weight: 83.007 kg

DRUGS (9)
  1. ENALAPRIL MALEATE [Concomitant]
     Route: 048
  2. CEPHADYN 50/650 [Concomitant]
     Route: 048
  3. ASPIRIN [Concomitant]
     Route: 048
  4. CITALOPRAM HYDROBROMIDE [Suspect]
     Indication: MAJOR DEPRESSION
     Dosage: 1
     Route: 048
     Dates: start: 20101201, end: 20110825
  5. MIRTAZAPINE [Concomitant]
     Route: 048
  6. NEURONTIN [Concomitant]
     Route: 048
  7. OMEPRAZOLE [Concomitant]
     Route: 048
  8. CITALOPRAM HYDROBROMIDE [Concomitant]
     Dosage: 1
     Route: 048
     Dates: start: 20110101, end: 20110825
  9. ALPRAZOLAM [Concomitant]
     Route: 048

REACTIONS (2)
  - MYOCARDIAL INFARCTION [None]
  - HEART INJURY [None]
